FAERS Safety Report 8019474-2 (Version None)
Quarter: 2012Q1

REPORT INFORMATION
  Report Type: 
  Country: None (occurrence: None)
  Receive Date: 20120103
  Receipt Date: 20111228
  Transmission Date: 20120608
  Serious: Yes (Other)
  Sender: FDA-Public Use
  Company Number: PHHY2011FR113247

PATIENT
  Sex: Female

DRUGS (11)
  1. TAXOTERE [Concomitant]
     Dosage: 170 MG, EVERY  3 WEEKS
     Dates: start: 20081016, end: 20090424
  2. EVEROLIMUS [Concomitant]
     Dosage: 2 DF, UNK
     Route: 048
  3. FEMARA [Concomitant]
     Dosage: 2.5 MG, QD
     Route: 048
     Dates: start: 20080620, end: 20080819
  4. PACLITAXEL [Concomitant]
     Dosage: 90 MG/M2, UNK
     Route: 042
     Dates: start: 20080903, end: 20081002
  5. AVASTIN [Concomitant]
     Dosage: 10 MEQ/KG, 600 MG/COURSE
     Dates: start: 20080903, end: 20090430
  6. TAMOXIFEN CITRATE [Concomitant]
     Dosage: 20 MG, / DAY
     Dates: start: 20090430
  7. XELODA [Concomitant]
     Dosage: 1650 MG, BID
     Dates: start: 20090808, end: 20100122
  8. ZOMETA [Suspect]
     Indication: OSTEOPOROSIS
     Dosage: 4 MG / 5 ML EVERY 4 WEEKS
     Dates: start: 20081107, end: 20101022
  9. DOXORUBICIN HYDROCHLORIDE [Concomitant]
     Dosage: 2 MG/ML, UNK
     Dates: start: 19700208, end: 20100923
  10. LYTOS [Suspect]
     Dosage: 520 MG, BID
     Dates: start: 20080601, end: 20081107
  11. LYTOS [Suspect]
     Dosage: 520 MG, BID
     Dates: start: 20101022, end: 20110204

REACTIONS (10)
  - GINGIVAL ULCERATION [None]
  - PRIMARY SEQUESTRUM [None]
  - EXPOSED BONE IN JAW [None]
  - PAIN IN JAW [None]
  - SENSORY DISTURBANCE [None]
  - GINGIVAL BLEEDING [None]
  - ORAL DISORDER [None]
  - TOOTHACHE [None]
  - RASH ERYTHEMATOUS [None]
  - OSTEONECROSIS OF JAW [None]
